FAERS Safety Report 18334986 (Version 2)
Quarter: 2020Q4

REPORT INFORMATION
  Report Type: Spontaneous
  Country: CN (occurrence: CN)
  Receive Date: 20201001
  Receipt Date: 20201015
  Transmission Date: 20210113
  Serious: Yes (Other)
  Sender: FDA-Public Use
  Company Number: CN-ASTRAZENECA-2020SF21159

PATIENT
  Age: 66 Year
  Sex: Female
  Weight: 62.5 kg

DRUGS (9)
  1. BETALOC [Suspect]
     Active Substance: METOPROLOL
     Indication: CARDIAC DISORDER
     Dosage: 1.0DF UNKNOWN
     Route: 048
  2. SYMBICORT [Suspect]
     Active Substance: BUDESONIDE\FORMOTEROL FUMARATE DIHYDRATE
     Dosage: ONCE AT THE NIGHT UNKNOWN
     Route: 055
  3. YIBODING [Suspect]
     Active Substance: VERAPAMIL HYDROCHLORIDE
     Dosage: LESS THAN ONE TABLET IN TOTAL, MORE THAN 1/3 PER DAY
     Route: 065
  4. SYMBICORT [Suspect]
     Active Substance: BUDESONIDE\FORMOTEROL FUMARATE DIHYDRATE
     Route: 055
  5. BETALOC [Suspect]
     Active Substance: METOPROLOL
     Indication: HYPERTENSION
     Dosage: 1.0DF UNKNOWN
     Route: 048
  6. BETALOC [Suspect]
     Active Substance: METOPROLOL
     Indication: CARDIAC DISORDER
     Dosage: 0.5DF UNKNOWN
     Route: 048
  7. BETALOC [Suspect]
     Active Substance: METOPROLOL
     Indication: HYPERTENSION
     Dosage: 0.5DF UNKNOWN
     Route: 048
  8. SYMBICORT [Suspect]
     Active Substance: BUDESONIDE\FORMOTEROL FUMARATE DIHYDRATE
     Dosage: ONCE A DAY
     Route: 055
  9. SYMBICORT [Suspect]
     Active Substance: BUDESONIDE\FORMOTEROL FUMARATE DIHYDRATE
     Dosage: ONCE EVERY 2-3 DAYS UNKNOWN
     Route: 055

REACTIONS (11)
  - Petechiae [Recovering/Resolving]
  - Myalgia [Recovered/Resolved]
  - Blood pressure fluctuation [Unknown]
  - Headache [Unknown]
  - Heart rate increased [Recovering/Resolving]
  - Arthropathy [Unknown]
  - Dizziness [Recovering/Resolving]
  - Therapy cessation [Unknown]
  - Cardiac arrest [Recovering/Resolving]
  - Cardiac discomfort [Recovering/Resolving]
  - Extrasystoles [Recovering/Resolving]
